APPROVED DRUG PRODUCT: HYDRALAZINE HYDROCHLORIDE
Active Ingredient: HYDRALAZINE HYDROCHLORIDE
Strength: 20MG/ML
Dosage Form/Route: INJECTABLE;INJECTION
Application: A040388 | Product #001 | TE Code: AP
Applicant: FRESENIUS KABI USA LLC
Approved: Mar 13, 2001 | RLD: No | RS: Yes | Type: RX